FAERS Safety Report 23617211 (Version 1)
Quarter: 2024Q1

REPORT INFORMATION
  Report Type: Other
  Country: CN (occurrence: None)
  Receive Date: 20240311
  Receipt Date: 20240311
  Transmission Date: 20240410
  Serious: Yes (Other)
  Sender: FDA-Public Use
  Company Number: CN-ROCHE-3519378

PATIENT
  Age: 58 Year
  Sex: Male

DRUGS (9)
  1. TRASTUZUMAB [Suspect]
     Active Substance: TRASTUZUMAB
     Indication: Metastatic gastric cancer
     Dosage: ON DAY 1
     Route: 065
  2. DOCETAXEL [Suspect]
     Active Substance: DOCETAXEL\DOCETAXEL ANHYDROUS
     Indication: Metastatic gastric cancer
     Dosage: ON DAY 1
     Route: 065
  3. CISPLATIN [Suspect]
     Active Substance: CISPLATIN
     Indication: Metastatic gastric cancer
     Dosage: ON DAY 1
     Route: 065
  4. IRINOTECAN [Suspect]
     Active Substance: IRINOTECAN
     Indication: Metastatic gastric cancer
     Route: 065
  5. GIMERACIL\OTERACIL\TEGAFUR [Suspect]
     Active Substance: GIMERACIL\OTERACIL POTASSIUM\TEGAFUR
     Indication: Metastatic gastric cancer
     Dosage: ON DAYS 1-14
     Route: 065
  6. DISITAMAB VEDOTIN [Suspect]
     Active Substance: DISITAMAB VEDOTIN
     Indication: Metastatic gastric cancer
     Dosage: ON DAY 1
     Route: 065
  7. GRANULOCYTE-MACROPHAGE COLONY-STIMULATING FACTOR [Suspect]
     Active Substance: GRANULOCYTE-MACROPHAGE COLONY-STIMULATING FACTOR
     Indication: Metastatic gastric cancer
     Dosage: ON DAYS 4-8
     Route: 065
  8. CAMRELIZUMAB [Suspect]
     Active Substance: CAMRELIZUMAB
     Indication: Metastatic gastric cancer
     Dosage: ON DAY 6
     Route: 065
  9. CAMRELIZUMAB [Suspect]
     Active Substance: CAMRELIZUMAB
     Dosage: ON DAY 1
     Route: 065

REACTIONS (1)
  - Disease progression [Unknown]
